FAERS Safety Report 5142734-X (Version None)
Quarter: 2006Q4

REPORT INFORMATION
  Report Type: 
  Country: None (occurrence: None)
  Receive Date: 20061102
  Receipt Date: 20050922
  Transmission Date: 20070319
  Serious: Yes (Other)
  Sender: FDA-Public Use
  Company Number: 2005UW14207

PATIENT
  Sex: Female

DRUGS (3)
  1. SEROQUEL [Suspect]
     Dosage: 15 DOSAGE FORM
     Route: 048
  2. RISPERDAL [Suspect]
     Dosage: 30 DOSAGE FORM
  3. EFFEXOR XR [Suspect]
     Dosage: 75 DOSAGE FORM

REACTIONS (4)
  - BUNDLE BRANCH BLOCK [None]
  - CONVULSION [None]
  - MYDRIASIS [None]
  - TACHYCARDIA [None]
